FAERS Safety Report 20774330 (Version 1)
Quarter: 2022Q2

REPORT INFORMATION
  Report Type: Spontaneous
  Country: CA (occurrence: CA)
  Receive Date: 20220502
  Receipt Date: 20220502
  Transmission Date: 20220721
  Serious: Yes (Hospitalization, Disabling, Other)
  Sender: FDA-Public Use
  Company Number: CA-TEVA-2022-CA-2031827

PATIENT
  Age: 64 Year
  Sex: Female

DRUGS (10)
  1. FENTANYL [Suspect]
     Active Substance: FENTANYL
     Indication: Product used for unknown indication
     Route: 062
  2. HYDROMORPHONE HYDROCHLORIDE [Suspect]
     Active Substance: HYDROMORPHONE HYDROCHLORIDE
     Indication: Product used for unknown indication
     Route: 048
  3. HYDROMORPHONE HYDROCHLORIDE [Suspect]
     Active Substance: HYDROMORPHONE HYDROCHLORIDE
     Route: 048
  4. BENZOCAINE\DIPHENHYDRAMINE\MESULFEN\NITROFURAZONE\PENTACHLOROPHENOL\SA [Suspect]
     Active Substance: BENZOCAINE\DIPHENHYDRAMINE\MESULFEN\NITROFURAZONE\PENTACHLOROPHENOL\SALICYLIC ACID\UNDECYLENIC ACID
     Indication: Product used for unknown indication
     Route: 048
  5. DILAUDID [Suspect]
     Active Substance: HYDROMORPHONE HYDROCHLORIDE
     Indication: Product used for unknown indication
     Route: 048
  6. HYDROMORPHONE [Suspect]
     Active Substance: HYDROMORPHONE
     Indication: Product used for unknown indication
     Route: 048
  7. METHADONE HYDROCHLORIDE [Suspect]
     Active Substance: METHADONE HYDROCHLORIDE
     Indication: Product used for unknown indication
     Route: 062
  8. MS CONTIN [Suspect]
     Active Substance: MORPHINE SULFATE
     Indication: Product used for unknown indication
     Route: 048
  9. OXYCODONE HYDROCHLORIDE [Suspect]
     Active Substance: OXYCODONE HYDROCHLORIDE
     Indication: Product used for unknown indication
     Route: 048
  10. OXYCONTIN [Suspect]
     Active Substance: OXYCODONE HYDROCHLORIDE
     Indication: Product used for unknown indication
     Route: 048

REACTIONS (13)
  - Anxiety [Unknown]
  - Depression [Unknown]
  - Disturbance in attention [Unknown]
  - Drug dependence [Unknown]
  - Dysarthria [Unknown]
  - Fatigue [Unknown]
  - Feeling abnormal [Unknown]
  - Hallucination [Unknown]
  - Injury [Unknown]
  - Movement disorder [Unknown]
  - Sensory loss [Unknown]
  - Sleep apnoea syndrome [Unknown]
  - Suicidal ideation [Unknown]
